FAERS Safety Report 9226331 (Version 1)
Quarter: 2013Q2

REPORT INFORMATION
  Report Type: Spontaneous
  Country: DK (occurrence: GB)
  Receive Date: 20130411
  Receipt Date: 20130411
  Transmission Date: 20140414
  Serious: Yes (Death)
  Sender: FDA-Public Use
  Company Number: GB-FRI-1000044216

PATIENT
  Age: 60 Year
  Sex: Male

DRUGS (3)
  1. CITALOPRAM [Suspect]
     Route: 048
  2. METHADONE [Concomitant]
  3. ZOPICLONE [Concomitant]

REACTIONS (3)
  - Arrhythmia [Fatal]
  - Myocardial fibrosis [Not Recovered/Not Resolved]
  - Drug dependence [Not Recovered/Not Resolved]
